FAERS Safety Report 13565900 (Version 6)
Quarter: 2021Q3

REPORT INFORMATION
  Report Type: Spontaneous
  Country: DE (occurrence: DE)
  Receive Date: 20170520
  Receipt Date: 20210819
  Transmission Date: 20211014
  Serious: Yes (Death, Life-Threatening, Other)
  Sender: FDA-Public Use
  Company Number: DE-AUROBINDO-AUR-APL-2017-34116

PATIENT
  Age: 75 Year
  Sex: Male
  Weight: 82 kg

DRUGS (16)
  1. REMERGIL [Suspect]
     Active Substance: MIRTAZAPINE
     Indication: PROGRESSIVE MULTIFOCAL LEUKOENCEPHALOPATHY
     Dosage: 60 MG, QD
     Route: 048
     Dates: start: 20150101
  2. CYCLOPHOSPHAMIDE. [Concomitant]
     Active Substance: CYCLOPHOSPHAMIDE
     Dosage: 3 CYCLES
     Route: 065
     Dates: start: 201312, end: 201402
  3. EPIRUBICIN [Concomitant]
     Active Substance: EPIRUBICIN
     Indication: B-CELL LYMPHOMA
     Dosage: UNK
     Route: 065
     Dates: start: 201302, end: 201306
  4. FLUDARABINE PHOSPHATE. [Concomitant]
     Active Substance: FLUDARABINE PHOSPHATE
     Indication: B-CELL LYMPHOMA
     Dosage: UNK, 3 CYCLES
     Route: 065
     Dates: start: 200812, end: 200904
  5. FLUDARABINE PHOSPHATE. [Concomitant]
     Active Substance: FLUDARABINE PHOSPHATE
     Dosage: 3 CYCLES, DUE TO DISEASE PROGRESSION AND HEMOLYSIS ()
     Route: 065
     Dates: start: 201309, end: 201311
  6. MEFLOQUINE [Suspect]
     Active Substance: MEFLOQUINE
     Indication: PROGRESSIVE MULTIFOCAL LEUKOENCEPHALOPATHY
     Dosage: 250 MILLIGRAM, 1 WEEK, FOR THREE DAYS
     Route: 048
     Dates: start: 20150101, end: 20150101
  7. BENDAMUSTINA [Concomitant]
     Active Substance: BENDAMUSTINE
     Indication: B-CELL LYMPHOMA
     Dosage: UNK
     Route: 065
     Dates: start: 201202, end: 201204
  8. PREDNISOLON [Concomitant]
     Active Substance: PREDNISOLONE
     Indication: B-CELL LYMPHOMA
     Dosage: 6 CYCLES
     Route: 065
     Dates: start: 201302, end: 201306
  9. IBRUTINIB [Suspect]
     Active Substance: IBRUTINIB
     Indication: B-CELL LYMPHOMA
     Dosage: UNK
     Route: 065
     Dates: start: 20150304
  10. CHLORAMBUCIL [Concomitant]
     Active Substance: CHLORAMBUCIL
     Indication: B-CELL LYMPHOMA
     Dosage: UNK
     Route: 065
     Dates: start: 201503
  11. CYCLOPHOSPHAMIDE. [Concomitant]
     Active Substance: CYCLOPHOSPHAMIDE
     Indication: B-CELL LYMPHOMA
     Dosage: UNK
     Route: 065
     Dates: start: 200812, end: 200904
  12. CYCLOPHOSPHAMIDE. [Concomitant]
     Active Substance: CYCLOPHOSPHAMIDE
     Dosage: 6 CYCLES
     Route: 065
     Dates: start: 201302, end: 201306
  13. MIRTAZAPINE FILM?COATED TABLET [Suspect]
     Active Substance: MIRTAZAPINE
     Indication: PROGRESSIVE MULTIFOCAL LEUKOENCEPHALOPATHY
     Dosage: 60 MILLIGRAM, DAILY
     Route: 048
     Dates: start: 2015
  14. MEFLOQUINE [Suspect]
     Active Substance: MEFLOQUINE
     Dosage: 250 MILLIGRAM,(FOR THREE DAYS)
     Route: 048
     Dates: start: 20150101, end: 2015
  15. RITUXIMAB. [Suspect]
     Active Substance: RITUXIMAB
     Indication: B-CELL LYMPHOMA
     Dosage: UNK
     Route: 065
     Dates: start: 201202, end: 201204
  16. FLUDARABINE PHOSPHATE. [Concomitant]
     Active Substance: FLUDARABINE PHOSPHATE
     Dosage: UNK, 3 CYCLES
     Route: 065
     Dates: start: 201312, end: 201402

REACTIONS (19)
  - Condition aggravated [Fatal]
  - Drug ineffective [Fatal]
  - Atypical pneumonia [Fatal]
  - Hyperkeratosis [Fatal]
  - Chronic lymphocytic leukaemia [Unknown]
  - Dysarthria [Unknown]
  - Paresis [Unknown]
  - Off label use [Fatal]
  - Diarrhoea [Fatal]
  - Polyneuropathy [Fatal]
  - Hypoaesthesia [Unknown]
  - Eyelid ptosis [Unknown]
  - Bone marrow failure [Fatal]
  - Pneumonia aspiration [Fatal]
  - Atrial fibrillation [Unknown]
  - Squamous cell carcinoma [Fatal]
  - Paraesthesia [Unknown]
  - Haemolysis [Unknown]
  - Progressive multifocal leukoencephalopathy [Fatal]

NARRATIVE: CASE EVENT DATE: 201204
